APPROVED DRUG PRODUCT: LEUCOVORIN CALCIUM
Active Ingredient: LEUCOVORIN CALCIUM
Strength: EQ 25MG BASE
Dosage Form/Route: TABLET;ORAL
Application: A211132 | Product #004 | TE Code: AB
Applicant: NOVAST LABORATORIES LTD
Approved: Jul 30, 2020 | RLD: No | RS: No | Type: RX